FAERS Safety Report 6762152-8 (Version None)
Quarter: 2010Q2

REPORT INFORMATION
  Report Type: 
  Country: None (occurrence: None)
  Receive Date: 20100609
  Receipt Date: 20100304
  Transmission Date: 20101027
  Serious: No
  Sender: FDA-Public Use
  Company Number: US-KINGPHARMUSA00001-K201000271

PATIENT
  Age: 24 Year
  Sex: Female

DRUGS (1)
  1. EMBEDA [Suspect]
     Indication: ARTHRALGIA
     Dosage: 20 MG, UNK
     Route: 048

REACTIONS (2)
  - HYPERHIDROSIS [None]
  - PRURITUS [None]
